FAERS Safety Report 13615131 (Version 2)
Quarter: 2017Q2

REPORT INFORMATION
  Report Type: Report from Study
  Country: JP (occurrence: JP)
  Receive Date: 20170606
  Receipt Date: 20170614
  Transmission Date: 20170830
  Serious: Yes (Hospitalization)
  Sender: FDA-Public Use
  Company Number: JP-TAKEDA-2017TJP011514

PATIENT
  Age: 77 Year
  Sex: Male
  Weight: 62.4 kg

DRUGS (18)
  1. IXAZOMIB [Suspect]
     Active Substance: IXAZOMIB
     Indication: PLASMA CELL MYELOMA
     Dosage: 4.0 MG, 1/WEEK
     Route: 048
     Dates: start: 20170501
  2. BAYASPIRIN [Concomitant]
     Active Substance: ASPIRIN
     Indication: THROMBOSIS PROPHYLAXIS
     Dosage: 100 MG, UNK
     Route: 048
     Dates: start: 20170501
  3. LEVOFLOXACIN. [Concomitant]
     Active Substance: LEVOFLOXACIN
     Indication: VIRAL UPPER RESPIRATORY TRACT INFECTION
     Dosage: 500 MG, UNK
     Route: 048
     Dates: start: 20170527, end: 20170529
  4. ITRIZOLE [Concomitant]
     Active Substance: ITRACONAZOLE
     Indication: ANTIFUNGAL PROPHYLAXIS
     Dosage: 200 MG, UNK
     Route: 048
     Dates: start: 20170501
  5. SENNOSIDE                          /00571902/ [Concomitant]
     Active Substance: SENNOSIDES A AND B
     Indication: CONSTIPATION
     Dosage: 24 MG, UNK
     Route: 048
     Dates: start: 20170511
  6. DEXAMETHASONE. [Suspect]
     Active Substance: DEXAMETHASONE
     Indication: PLASMA CELL MYELOMA
     Dosage: 40 MG, 1/WEEK
     Route: 048
     Dates: start: 20170501
  7. VALACICLOVIR                       /01269702/ [Concomitant]
     Active Substance: VALACYCLOVIR HYDROCHLORIDE
     Indication: PROPHYLAXIS
     Dosage: 500 MG, UNK
     Route: 048
     Dates: start: 20170501
  8. ZYPREXA [Concomitant]
     Active Substance: OLANZAPINE
     Indication: HALLUCINATION, AUDITORY
     Dosage: 2.5 MG, UNK
     Route: 048
     Dates: start: 20170522
  9. PL [Concomitant]
     Active Substance: ACETAMINOPHEN\CAFFEINE\PROMETHAZINE\SALICYLAMIDE
     Indication: VIRAL UPPER RESPIRATORY TRACT INFECTION
     Dosage: 3 G, UNK
     Route: 048
     Dates: start: 20170522, end: 20170529
  10. CARBOCISTEINE [Concomitant]
     Active Substance: CARBOCYSTEINE
     Indication: VIRAL UPPER RESPIRATORY TRACT INFECTION
     Dosage: 1500 MG, UNK
     Route: 048
     Dates: start: 20170525, end: 20170529
  11. PARIET [Concomitant]
     Active Substance: RABEPRAZOLE SODIUM
     Indication: GASTRITIS PROPHYLAXIS
     Dosage: 10 MG, UNK
     Route: 048
     Dates: start: 20170501
  12. MAINTATE [Concomitant]
     Active Substance: BISOPROLOL FUMARATE
     Indication: ARRHYTHMIA PROPHYLAXIS
     Dosage: 2.5 MG, UNK
     Route: 048
     Dates: start: 20150908
  13. LENALIDOMIDE [Suspect]
     Active Substance: LENALIDOMIDE
     Indication: PLASMA CELL MYELOMA
     Dosage: 25 MG, QD
     Route: 048
     Dates: start: 20170501
  14. HOKUNALIN                          /00654901/ [Concomitant]
     Active Substance: TULOBUTEROL
     Indication: VIRAL UPPER RESPIRATORY TRACT INFECTION
     Dosage: 1 DF, UNK
     Route: 062
     Dates: start: 20170525, end: 20170529
  15. DAIKENCHUTO [Concomitant]
     Active Substance: HERBALS
     Indication: CONSTIPATION
     Dosage: 7.5 G, UNK
     Route: 048
     Dates: start: 20170511
  16. ALESION [Concomitant]
     Active Substance: EPINASTINE HYDROCHLORIDE
     Indication: VIRAL UPPER RESPIRATORY TRACT INFECTION
     Dosage: 20 MG, UNK
     Route: 048
     Dates: start: 20170525, end: 20170529
  17. HUSTAZOL                           /00398402/ [Concomitant]
     Indication: VIRAL UPPER RESPIRATORY TRACT INFECTION
     Dosage: 30 MG, UNK
     Route: 048
     Dates: start: 20170525, end: 20170529
  18. CALONAL [Concomitant]
     Active Substance: ACETAMINOPHEN
     Indication: VIRAL UPPER RESPIRATORY TRACT INFECTION
     Dosage: 500 MG, UNK
     Route: 048
     Dates: start: 20170527, end: 20170529

REACTIONS (1)
  - Pneumonia [Recovered/Resolved]

NARRATIVE: CASE EVENT DATE: 20170529
